FAERS Safety Report 21640683 (Version 2)
Quarter: 2022Q4

REPORT INFORMATION
  Report Type: Report from Study
  Country: TW (occurrence: TW)
  Receive Date: 20221124
  Receipt Date: 20221201
  Transmission Date: 20230112
  Serious: Yes (Hospitalization)
  Sender: FDA-Public Use
  Company Number: TW-ABBVIE-4213500

PATIENT
  Age: 69 Year
  Sex: Male
  Weight: 61 kg

DRUGS (1)
  1. HUMIRA [Suspect]
     Active Substance: ADALIMUMAB
     Indication: Rheumatoid arthritis
     Route: 058
     Dates: start: 20170915, end: 20220907

REACTIONS (4)
  - Spinal cord compression [Recovering/Resolving]
  - Weight decreased [Unknown]
  - Muscular weakness [Unknown]
  - Post procedural complication [Unknown]

NARRATIVE: CASE EVENT DATE: 20221018
